FAERS Safety Report 9728511 (Version 2)
Quarter: 2013Q4

REPORT INFORMATION
  Report Type: Spontaneous
  Country: FR (occurrence: None)
  Receive Date: 20131202
  Receipt Date: 20131218
  Transmission Date: 20140711
  Serious: Yes (Life-Threatening, Hospitalization)
  Sender: FDA-Public Use
  Company Number: AXC-2013-000633

PATIENT
  Age: 34 Year
  Sex: Male

DRUGS (2)
  1. PYLERA [Suspect]
     Indication: HELICOBACTER INFECTION
     Dosage: 3 DF, QID, ORAL
     Route: 048
     Dates: start: 20130927, end: 20130929
  2. PARIET [Concomitant]

REACTIONS (12)
  - Rash [None]
  - Skin exfoliation [None]
  - Angioedema [None]
  - Eosinophilia [None]
  - Pyrexia [None]
  - Cough [None]
  - Liver injury [None]
  - Jaundice [None]
  - General physical health deterioration [None]
  - Rash [None]
  - Hepatocellular injury [None]
  - Cholestasis [None]
